FAERS Safety Report 13301760 (Version 1)
Quarter: 2017Q1

REPORT INFORMATION
  Report Type: Report from Study
  Country: JP (occurrence: JP)
  Receive Date: 20170307
  Receipt Date: 20170307
  Transmission Date: 20170428
  Serious: Yes (Death, Other)
  Sender: FDA-Public Use
  Company Number: PHHY2013JP168331

PATIENT
  Age: 60 Year
  Sex: Male
  Weight: 67 kg

DRUGS (3)
  1. PAZOPANIB [Suspect]
     Active Substance: PAZOPANIB
     Dosage: 200 MG, UNK
     Route: 048
  2. DUROTEP [Concomitant]
     Active Substance: FENTANYL
     Indication: CANCER PAIN
     Dosage: 4.2 MG, UNK
     Route: 061
     Dates: start: 20130703
  3. PAZOPANIB [Suspect]
     Active Substance: PAZOPANIB
     Indication: LIPOSARCOMA
     Dosage: 600 MG, QD
     Route: 048
     Dates: start: 20130919, end: 20130921

REACTIONS (7)
  - Product use issue [Unknown]
  - Fall [Unknown]
  - Anaemia [Unknown]
  - Spinal column injury [Fatal]
  - Tumour rupture [Unknown]
  - Tumour lysis syndrome [Fatal]
  - Syncope [Recovered/Resolved]

NARRATIVE: CASE EVENT DATE: 20130922
